FAERS Safety Report 4890379-9 (Version None)
Quarter: 2005Q4

REPORT INFORMATION
  Report Type: 
  Country: None (occurrence: None)
  Receive Date: 20051216
  Receipt Date: 20050718
  Transmission Date: 20060501
  Serious: No
  Sender: FDA-Public Use
  Company Number: USA050496820

PATIENT
  Age: 51 Year
  Sex: Male

DRUGS (5)
  1. CIALIS [Suspect]
     Indication: ERECTILE DYSFUNCTION
     Dosage: 20 MG OTHER
     Route: 050
  2. WELCHOL [Concomitant]
  3. ZYRTEK (CETIRIZINE HYDROCHLORIDE) [Concomitant]
  4. ATIVAN [Concomitant]
  5. ASPIRIN [Concomitant]

REACTIONS (1)
  - OCULAR HYPERTENSION [None]
